FAERS Safety Report 4954679-6 (Version None)
Quarter: 2006Q1

REPORT INFORMATION
  Report Type: 
  Country: None (occurrence: None)
  Receive Date: 20060327
  Receipt Date: 20060215
  Transmission Date: 20060701
  Serious: Yes (Death, Life-Threatening)
  Sender: FDA-Public Use
  Company Number: SK-AMGEN-ICO168951

PATIENT
  Sex: Male

DRUGS (6)
  1. DARBEPOETIN ALFA [Suspect]
     Indication: RENAL FAILURE CHRONIC
     Route: 058
     Dates: start: 20050719, end: 20060131
  2. RESONIUM [Concomitant]
     Route: 048
     Dates: start: 20060201
  3. FUROSEMIDE [Concomitant]
     Route: 048
     Dates: start: 20051201, end: 20060131
  4. GLUCOPHAGE [Concomitant]
     Route: 048
     Dates: start: 20051206
  5. IRON [Concomitant]
     Route: 048
     Dates: start: 20051029
  6. MONOPRIL [Concomitant]
     Route: 048
     Dates: start: 20050405

REACTIONS (4)
  - ARTERIOSCLEROSIS CORONARY ARTERY [None]
  - CARDIAC FAILURE CONGESTIVE [None]
  - MYOCARDIAL INFARCTION [None]
  - SUDDEN DEATH [None]
